FAERS Safety Report 11749696 (Version 1)
Quarter: 2015Q4

REPORT INFORMATION
  Report Type: Spontaneous
  Country: US (occurrence: None)
  Receive Date: 20151116
  Receipt Date: 20151116
  Transmission Date: 20160304
  Serious: No
  Sender: FDA-Public Use
  Company Number: None

PATIENT
  Sex: Female

DRUGS (1)
  1. GLEEVEC [Suspect]
     Active Substance: IMATINIB MESYLATE
     Indication: FIBROMATOSIS
     Route: 048
     Dates: start: 20141120

REACTIONS (4)
  - Arthralgia [None]
  - Urticaria [None]
  - Swelling [None]
  - Rash [None]
